FAERS Safety Report 9763417 (Version 2)
Quarter: 2014Q1

REPORT INFORMATION
  Report Type: Spontaneous
  Country: US (occurrence: US)
  Receive Date: 20131216
  Receipt Date: 20140113
  Transmission Date: 20141002
  Serious: No
  Sender: FDA-Public Use
  Company Number: US-BIOGENIDEC-2013BI109737

PATIENT
  Age: 33 Year
  Sex: Female

DRUGS (13)
  1. TECFIDERA [Suspect]
     Indication: MULTIPLE SCLEROSIS
     Route: 048
     Dates: start: 201310
  2. TECFIDERA [Suspect]
     Indication: MULTIPLE SCLEROSIS
     Route: 048
     Dates: start: 20131011, end: 20131017
  3. TECFIDERA [Suspect]
     Indication: MULTIPLE SCLEROSIS
     Route: 048
     Dates: start: 20131018
  4. FLONASE [Concomitant]
  5. VALTREX [Concomitant]
  6. VITAMIN B12 [Concomitant]
  7. FLUTICASONE PROPIONATE [Concomitant]
  8. CALCIUM CITRATE PLUS VIT D [Concomitant]
  9. SINGULAIR [Concomitant]
  10. ALBUTEROL SULFATE [Concomitant]
  11. FLEXERIL [Concomitant]
  12. KLONOPIN [Concomitant]
  13. DEPO PROVERA [Concomitant]
     Route: 058

REACTIONS (4)
  - Flatulence [Unknown]
  - Flushing [Unknown]
  - Diarrhoea [Unknown]
  - Dyspepsia [Unknown]
